FAERS Safety Report 10900859 (Version 2)
Quarter: 2015Q2

REPORT INFORMATION
  Report Type: Spontaneous
  Country: US (occurrence: US)
  Receive Date: 20150310
  Receipt Date: 20150402
  Transmission Date: 20150821
  Serious: No
  Sender: FDA-Public Use
  Company Number: US-PFIZER INC-2015081641

PATIENT
  Age: 73 Year
  Sex: Female
  Weight: 86.2 kg

DRUGS (1)
  1. PROTONIX [Suspect]
     Active Substance: PANTOPRAZOLE SODIUM
     Dosage: IN THE MORNING

REACTIONS (3)
  - Gastrooesophageal reflux disease [Unknown]
  - Dizziness [Unknown]
  - Burning sensation [Unknown]
